FAERS Safety Report 10955268 (Version 3)
Quarter: 2015Q2

REPORT INFORMATION
  Report Type: Report from Study
  Country: US (occurrence: US)
  Receive Date: 20150326
  Receipt Date: 20150501
  Transmission Date: 20150821
  Serious: Yes (Hospitalization)
  Sender: FDA-Public Use
  Company Number: US-ACTELION-A-NJ2015-114924

PATIENT
  Age: 12 Year
  Sex: Female

DRUGS (4)
  1. TOPIRAMATE. [Concomitant]
     Active Substance: TOPIRAMATE
  2. TRACLEER [Suspect]
     Active Substance: BOSENTAN\BOSENTAN MONOHYDRATE
     Indication: PULMONARY HYPERTENSION
     Dosage: 62.5 MG, BID
     Route: 048
     Dates: start: 201404
  3. ADCIRCA [Suspect]
     Active Substance: TADALAFIL
     Indication: PULMONARY HYPERTENSION
     Dosage: 10 MG, QD
     Route: 048
     Dates: start: 201406
  4. PROPRANOLOL [Concomitant]
     Active Substance: PROPRANOLOL\PROPRANOLOL HYDROCHLORIDE
     Dosage: UNK

REACTIONS (2)
  - Biliary dyskinesia [Unknown]
  - Cholecystectomy [Unknown]

NARRATIVE: CASE EVENT DATE: 20150219
